FAERS Safety Report 5206790-2 (Version None)
Quarter: 2006Q4

REPORT INFORMATION
  Report Type: 
  Country: None (occurrence: None)
  Receive Date: 20061027
  Receipt Date: 20060905
  Transmission Date: 20070319
  Serious: No
  Sender: FDA-Public Use
  Company Number: 012376

PATIENT
  Age: 63 Year
  Sex: Male

DRUGS (9)
  1. PRIALT [Suspect]
     Indication: POST LAMINECTOMY SYNDROME
     Dosage: 0.2 UG, ONCE/HOUR, INTRATHECAL; SEE IMAGE
     Route: 037
     Dates: start: 20060519, end: 20060606
  2. PRIALT [Suspect]
     Indication: POST LAMINECTOMY SYNDROME
     Dosage: 0.2 UG, ONCE/HOUR, INTRATHECAL; SEE IMAGE
     Route: 037
     Dates: start: 20060606, end: 20060710
  3. PRIALT [Suspect]
     Indication: POST LAMINECTOMY SYNDROME
     Dosage: 0.2 UG, ONCE/HOUR, INTRATHECAL; SEE IMAGE
     Route: 037
     Dates: start: 20060710, end: 20060723
  4. PRIALT [Suspect]
     Indication: POST LAMINECTOMY SYNDROME
     Dosage: 0.2 UG, ONCE/HOUR, INTRATHECAL; SEE IMAGE
     Route: 037
     Dates: start: 20060723
  5. TRAZODONE HCL [Concomitant]
  6. PERCOCET [Concomitant]
  7. ELAVIL [Concomitant]
  8. ZOLOFT [Concomitant]
  9. PREVACID [Concomitant]

REACTIONS (4)
  - HALLUCINATION [None]
  - MEMORY IMPAIRMENT [None]
  - PRURITUS [None]
  - RASH [None]
